FAERS Safety Report 6905867-0 (Version None)
Quarter: 2010Q3

REPORT INFORMATION
  Report Type: 
  Country: None (occurrence: None)
  Receive Date: 20100804
  Receipt Date: 20100726
  Transmission Date: 20110219
  Serious: Yes (Hospitalization, Disabling)
  Sender: FDA-Public Use
  Company Number: DE-ROCHE-695838

PATIENT
  Sex: Female
  Weight: 70 kg

DRUGS (2)
  1. CAPECITABINE [Suspect]
     Indication: RECTAL CANCER
     Dosage: DOSE PRIOR TO EVENT: 29 MAR 2010, DOSE AT LAST ADMIN: 2X1500 MG, PAUSED FROM 30/03/10 TO 5/04/10
     Route: 048
     Dates: start: 20100301
  2. OXALIPLATIN [Suspect]
     Indication: RECTAL CANCER
     Route: 042

REACTIONS (3)
  - CYSTITIS [None]
  - DRUG INTOLERANCE [None]
  - PROCTITIS [None]
